FAERS Safety Report 6909425-3 (Version None)
Quarter: 2010Q3

REPORT INFORMATION
  Report Type: 
  Country: None (occurrence: None)
  Receive Date: 20100805
  Receipt Date: 20100728
  Transmission Date: 20110219
  Serious: Yes (Other)
  Sender: FDA-Public Use
  Company Number: A0872951A

PATIENT
  Sex: Male

DRUGS (3)
  1. ARZERRA [Suspect]
     Dosage: 2000MG SINGLE DOSE
     Route: 042
     Dates: start: 20100713
  2. ANTIVIRAL [Concomitant]
  3. ANTIBIOTICS [Concomitant]

REACTIONS (2)
  - ALANINE AMINOTRANSFERASE INCREASED [None]
  - LIVER FUNCTION TEST ABNORMAL [None]
